FAERS Safety Report 5444318-2 (Version None)
Quarter: 2007Q3

REPORT INFORMATION
  Report Type: 
  Country: None (occurrence: None)
  Receive Date: 20070831
  Receipt Date: 20070823
  Transmission Date: 20080115
  Serious: Yes (Death)
  Sender: FDA-Public Use
  Company Number: 2007-03928

PATIENT
  Age: 20 Year
  Sex: Male

DRUGS (6)
  1. ETOPOSIDE [Suspect]
     Indication: NEOPLASM MALIGNANT
     Dosage: 75 MG/M2, DAILY X 3 COURSES
  2. CARBOPLATIN [Suspect]
     Indication: OVARIAN CANCER
     Dosage: 400 MG/M2, X COURSES
  3. CISPLATIN [Suspect]
     Indication: NEOPLASM MALIGNANT
     Dosage: 90 MG/M2
  4. CYCLOPHOSPHAMIDE [Suspect]
     Indication: NEOPLASM MALIGNANT
     Dosage: 1500 MG/M2, DAILY X 2 COURSES
  5. VINCRISTINE [Suspect]
     Indication: NEOPLASM MALIGNANT
     Dosage: 1.5 MG/M2, X 3 COURSES
  6. RADIOTHERAPY [Suspect]
     Indication: NEOPLASM MALIGNANT
     Dosage: 1980 CGY

REACTIONS (2)
  - GLIOBLASTOMA MULTIFORME [None]
  - METASTASES TO CENTRAL NERVOUS SYSTEM [None]
